FAERS Safety Report 4917359-9 (Version None)
Quarter: 2006Q1

REPORT INFORMATION
  Report Type: 
  Country: None (occurrence: None)
  Receive Date: 20060221
  Receipt Date: 20050804
  Transmission Date: 20060701
  Serious: Yes (Congenital Anomaly)
  Sender: FDA-Public Use
  Company Number: BR-GLAXOSMITHKLINE-A0569363B

PATIENT
  Sex: Female
  Weight: 3.1 kg

DRUGS (5)
  1. AEROLIN [Suspect]
     Indication: ASTHMA
  2. COMBIVENT [Suspect]
     Indication: ASTHMA
  3. RINOFLUIMUCIL [Suspect]
     Indication: ASTHMA
  4. PRELONE [Suspect]
     Indication: ASTHMA
  5. BUDESONIDE [Suspect]
     Indication: ASTHMA
     Dosage: 400MCG UNKNOWN

REACTIONS (6)
  - ASTHMA [None]
  - DRUG EXPOSURE DURING PREGNANCY [None]
  - NEONATAL DISORDER [None]
  - PHALANGEAL AGENESIS [None]
  - RASH [None]
  - SYNDACTYLY [None]
